FAERS Safety Report 5984195-4 (Version None)
Quarter: 2008Q4

REPORT INFORMATION
  Report Type: 
  Country: None (occurrence: None)
  Receive Date: 20081208
  Receipt Date: 20081127
  Transmission Date: 20090506
  Serious: Yes (Other)
  Sender: FDA-Public Use
  Company Number: DE-ASTRAZENECA-2008PK02601

PATIENT
  Age: 69 Year
  Sex: Male
  Weight: 107 kg

DRUGS (4)
  1. SYMBICORT [Suspect]
     Indication: CHRONIC OBSTRUCTIVE PULMONARY DISEASE
     Dosage: 160/4.5 UG ONE INHALATION TWICE DAILY
     Route: 055
     Dates: start: 20050719, end: 20050818
  2. BERODUAL N [Concomitant]
  3. VIANI FORTE [Concomitant]
     Dosage: TWO INHALATIONS TWICE DAILY
  4. SPIRIVA [Concomitant]
     Dosage: ONE INHALATION DAILY

REACTIONS (2)
  - DRUG INEFFECTIVE [None]
  - DYSPNOEA [None]
